FAERS Safety Report 7703370-1 (Version None)
Quarter: 2011Q3

REPORT INFORMATION
  Report Type: 
  Country: None (occurrence: None)
  Receive Date: 20110817
  Receipt Date: 20110809
  Transmission Date: 20111222
  Serious: Yes (Other)
  Sender: FDA-Public Use
  Company Number: WAES 1108ESP00018

PATIENT
  Age: 76 Year
  Sex: Female

DRUGS (1)
  1. PRIMAXIN [Suspect]
     Indication: SKIN INFECTION
     Dosage: IV
     Route: 042

REACTIONS (1)
  - SQUAMOUS CELL CARCINOMA OF SKIN [None]
